FAERS Safety Report 6818760-9 (Version None)
Quarter: 2010Q3

REPORT INFORMATION
  Report Type: 
  Country: None (occurrence: None)
  Receive Date: 20100701
  Receipt Date: 20100625
  Transmission Date: 20110219
  Serious: Yes (Hospitalization, Other)
  Sender: FDA-Public Use
  Company Number: 2009-196762-NL

PATIENT
  Age: 25 Year
  Sex: Female
  Weight: 52.1637 kg

DRUGS (2)
  1. NUVARING [Suspect]
     Indication: CONTRACEPTION
     Dosage: ; VAG
     Route: 067
     Dates: start: 20060201, end: 20070601
  2. ADVIL LIQUI-GELS [Concomitant]

REACTIONS (26)
  - ANXIETY DISORDER [None]
  - AUTOIMMUNE DISORDER [None]
  - BLOOD HOMOCYSTEINE DECREASED [None]
  - BLOOD THYROID STIMULATING HORMONE INCREASED [None]
  - BREAST DISORDER [None]
  - CHILLS [None]
  - CONVULSION [None]
  - DEEP VEIN THROMBOSIS [None]
  - DEPRESSION [None]
  - DRUG EXPOSURE DURING PREGNANCY [None]
  - DRUG SCREEN POSITIVE [None]
  - DYSFUNCTIONAL UTERINE BLEEDING [None]
  - FINGER DEFORMITY [None]
  - HAEMANGIOMA OF LIVER [None]
  - INSOMNIA [None]
  - MUSCULOSKELETAL PAIN [None]
  - OCCULT BLOOD POSITIVE [None]
  - OPIATES POSITIVE [None]
  - OSTEOPOROSIS [None]
  - PREGNANCY WITH CONTRACEPTIVE DEVICE [None]
  - PULMONARY EMBOLISM [None]
  - PYREXIA [None]
  - RHINITIS [None]
  - THYROID DISORDER [None]
  - TRI-IODOTHYRONINE DECREASED [None]
  - VOMITING [None]
